FAERS Safety Report 9157033 (Version 1)
Quarter: 2013Q1

REPORT INFORMATION
  Report Type: Spontaneous
  Country: US (occurrence: US)
  Receive Date: 20130312
  Receipt Date: 20130312
  Transmission Date: 20140127
  Serious: Yes (Other)
  Sender: FDA-Public Use
  Company Number: US-PFIZER INC-2013079627

PATIENT
  Age: 35 Year
  Sex: Male

DRUGS (2)
  1. NEURONTIN [Suspect]
     Indication: EPILEPSY
     Dosage: 300 UNKNOWN UNITS, 1 CAPSULE 3 TIMES A DAY
  2. DILANTIN [Suspect]
     Indication: EPILEPSY
     Dosage: 100 UNKNOWN UNITS; 5 CAPSULES DAILY

REACTIONS (1)
  - Convulsion [Unknown]
